FAERS Safety Report 14979105 (Version 1)
Quarter: 2018Q2

REPORT INFORMATION
  Report Type: Spontaneous
  Country: JP (occurrence: JP)
  Receive Date: 20180606
  Receipt Date: 20180606
  Transmission Date: 20180711
  Serious: Yes (Other)
  Sender: FDA-Public Use
  Company Number: JP-JNJFOC-20180541979

PATIENT
  Age: 81 Year
  Sex: Male

DRUGS (7)
  1. MEMARY [Concomitant]
     Active Substance: MEMANTINE HYDROCHLORIDE
     Route: 048
  2. REMINYL [Suspect]
     Active Substance: GALANTAMINE
     Indication: COGNITIVE DISORDER
     Dosage: AT 1 TIME, STRENGTH 4 MG
     Route: 048
  3. REMINYL [Suspect]
     Active Substance: GALANTAMINE
     Indication: COGNITIVE DISORDER
     Dosage: STRENGTH 4 MG, THIS DOSE WAS REDUCED.
     Route: 048
  4. REMINYL [Suspect]
     Active Substance: GALANTAMINE
     Indication: COGNITIVE DISORDER
     Dosage: STRENGTH 4 MG. THIS DOSE WAS REDUCED
     Route: 048
  5. REMINYL [Suspect]
     Active Substance: GALANTAMINE
     Indication: COGNITIVE DISORDER
     Dosage: STRENGTH 4 MG DOSE REDUCED
     Route: 048
  6. REMINYL [Suspect]
     Active Substance: GALANTAMINE
     Indication: COGNITIVE DISORDER
     Route: 048
  7. MEMARY [Concomitant]
     Active Substance: MEMANTINE HYDROCHLORIDE
     Route: 048

REACTIONS (5)
  - Paraesthesia [Recovered/Resolved]
  - Muscle spasms [Recovered/Resolved]
  - Feeling abnormal [Recovered/Resolved]
  - Hallucination [Recovered/Resolved]
  - Rhabdomyolysis [Recovered/Resolved]

NARRATIVE: CASE EVENT DATE: 201610
